FAERS Safety Report 4600250-5 (Version None)
Quarter: 2005Q1

REPORT INFORMATION
  Report Type: 
  Country: None (occurrence: None)
  Receive Date: 20050307
  Receipt Date: 20050105
  Transmission Date: 20050727
  Serious: Yes (Death)
  Sender: FDA-Public Use
  Company Number: US-GLAXOSMITHKLINE-A0548436A

PATIENT
  Sex: Male

DRUGS (2)
  1. SEREVENT [Suspect]
     Indication: DRUG USE FOR UNKNOWN INDICATION
  2. ADVAIR DISKUS 100/50 [Suspect]
     Indication: DRUG USE FOR UNKNOWN INDICATION
     Route: 055

REACTIONS (1)
  - DEATH [None]
